FAERS Safety Report 8354634-2 (Version None)
Quarter: 2012Q2

REPORT INFORMATION
  Report Type: 
  Country: None (occurrence: None)
  Receive Date: 20120510
  Receipt Date: 20120504
  Transmission Date: 20120825
  Serious: Yes (Other)
  Sender: FDA-Public Use
  Company Number: USA/USA/12/0024221

PATIENT
  Age: 70 Year
  Sex: Female
  Weight: 57.1532 kg

DRUGS (4)
  1. LEVETIRACETAM [Suspect]
     Indication: MIGRAINE
     Dosage: 250 MG, 4 IN 1 D, ORAL ; 125 MG, 4 IN 1 D, ORAL
     Route: 048
     Dates: start: 20120411
  2. LEVETIRACETAM [Suspect]
     Indication: MIGRAINE
     Dosage: 250 MG, 4 IN 1 D, ORAL ; 125 MG, 4 IN 1 D, ORAL
     Route: 048
     Dates: start: 20120401
  3. LYRICA [Suspect]
     Indication: PRODUCT USED FOR UNKNOWN INDICATION
     Dates: start: 20120418, end: 20120419
  4. TRAMADOL HCL [Suspect]
     Indication: PRODUCT USED FOR UNKNOWN INDICATION
     Dates: start: 20120418, end: 20120419

REACTIONS (15)
  - SOMNOLENCE [None]
  - PRODUCT QUALITY ISSUE [None]
  - IRRITABILITY [None]
  - DIZZINESS [None]
  - FEELING ABNORMAL [None]
  - SLEEP DISORDER [None]
  - ASTHENIA [None]
  - SYNCOPE [None]
  - VISUAL IMPAIRMENT [None]
  - ANXIETY [None]
  - FATIGUE [None]
  - DISTURBANCE IN ATTENTION [None]
  - ATAXIA [None]
  - AGITATION [None]
  - OFF LABEL USE [None]
